FAERS Safety Report 4284185-6 (Version None)
Quarter: 2004Q1

REPORT INFORMATION
  Report Type: 
  Country: None (occurrence: None)
  Receive Date: 20040130
  Receipt Date: 20040123
  Transmission Date: 20041129
  Serious: Yes (Hospitalization)
  Sender: FDA-Public Use
  Company Number: 2003191770AT

PATIENT
  Age: 68 Year
  Sex: Female

DRUGS (19)
  1. CAMPTOSAR [Suspect]
     Indication: COLORECTAL CANCER METASTATIC
     Dosage: 530 MG, EVERY 3 WEEKS, CYCLIC, IV
     Route: 042
     Dates: start: 20031107, end: 20031107
  2. CETUXIMAB [Suspect]
     Indication: COLORECTAL CANCER METASTATIC
     Dosage: 300 MG, WEEKLY, IV
     Route: 042
     Dates: start: 20031121, end: 20031121
  3. PANTOPRAZOLE [Concomitant]
  4. FUROSEMIDE [Concomitant]
  5. ALLOPURINOL [Concomitant]
  6. ERYTHROPOIETIN (ERYTHROPOIETIN) [Concomitant]
  7. RANITIDINE [Concomitant]
  8. GRANISETRON HYDROCHLORIDE [Concomitant]
  9. ATENOLOL [Concomitant]
  10. AMLODIPINE BESYLATE [Concomitant]
  11. POTASSIUM [Concomitant]
  12. LOPERAMIDE HYDROCHLORIDE [Concomitant]
  13. GLUCOSE [Concomitant]
  14. RINGERS INJECTION IN PLASTIC CONTAINER [Concomitant]
  15. CIPROFLOXACIN [Concomitant]
  16. POLYVIDONE (POLYVIDONE) [Concomitant]
  17. BENZOYL PEROXIDE [Concomitant]
  18. BAITRACIN [Concomitant]
  19. NEOMYCIN [Concomitant]

REACTIONS (7)
  - DIARRHOEA [None]
  - GASTROINTESTINAL INFECTION [None]
  - ILEUS [None]
  - INTESTINAL PERFORATION [None]
  - LIPASE INCREASED [None]
  - NAIL DISORDER [None]
  - PERITONITIS [None]
